FAERS Safety Report 21074201 (Version 6)
Quarter: 2022Q4

REPORT INFORMATION
  Report Type: Spontaneous
  Country: US (occurrence: US)
  Receive Date: 20220713
  Receipt Date: 20221018
  Transmission Date: 20230112
  Serious: No
  Sender: FDA-Public Use
  Company Number: US-LUPIN PHARMACEUTICALS INC.-2022-09301

PATIENT
  Sex: Male
  Weight: 77.11 kg

DRUGS (2)
  1. TADALAFIL [Suspect]
     Active Substance: TADALAFIL
     Indication: Prostatomegaly
     Dosage: 5 MG, QD, ONE MONTH AGO
     Route: 048
  2. TADALAFIL [Suspect]
     Active Substance: TADALAFIL
     Indication: Dysuria
     Dosage: UNK
     Route: 065

REACTIONS (5)
  - Dysuria [Recovered/Resolved]
  - Product taste abnormal [Unknown]
  - Poor quality product administered [Unknown]
  - Product quality issue [Unknown]
  - Product dispensing error [Unknown]
